FAERS Safety Report 6168859-8 (Version None)
Quarter: 2009Q2

REPORT INFORMATION
  Report Type: 
  Country: None (occurrence: None)
  Receive Date: 20090424
  Receipt Date: 20090424
  Transmission Date: 20091009
  Serious: Yes (Other)
  Sender: FDA-Public Use
  Company Number: None

PATIENT

DRUGS (1)
  1. NON- ASPIRIN PM EXTRA STRENGTH SHOPRITE [Suspect]
     Indication: SLEEP DISORDER
     Dosage: 2 CAPLETS ONCE NIGHTLY PO
     Route: 048
     Dates: start: 20080901

REACTIONS (3)
  - PAIN IN EXTREMITY [None]
  - POOR QUALITY SLEEP [None]
  - SOMNOLENCE [None]
